FAERS Safety Report 9232998 (Version 1)
Quarter: 2013Q1

REPORT INFORMATION
  Report Type: Spontaneous
  Country: US (occurrence: None)
  Receive Date: 20121031
  Receipt Date: 20121031
  Transmission Date: 20140127
  Serious: Yes (Hospitalization)
  Sender: FDA-Public Use
  Company Number: PHEH2012US014088

PATIENT
  Age: 43 Year
  Sex: Male

DRUGS (1)
  1. GILENYA [Suspect]

REACTIONS (4)
  - Multiple sclerosis relapse [None]
  - Gait disturbance [None]
  - Joint stiffness [None]
  - Limb discomfort [None]
